FAERS Safety Report 21756792 (Version 1)
Quarter: 2022Q4

REPORT INFORMATION
  Report Type: Spontaneous
  Country: CN (occurrence: None)
  Receive Date: 20221220
  Receipt Date: 20221220
  Transmission Date: 20230112
  Serious: Yes (Other)
  Sender: FDA-Public Use
  Company Number: 2022A404429

PATIENT
  Age: 2737 Week
  Sex: Male

DRUGS (1)
  1. LOSEC [Suspect]
     Active Substance: OMEPRAZOLE
     Indication: Abdominal pain
     Route: 048
     Dates: start: 20221110, end: 20221117

REACTIONS (2)
  - Acute kidney injury [Unknown]
  - Nephropathy [Recovering/Resolving]

NARRATIVE: CASE EVENT DATE: 20221116
